FAERS Safety Report 6213020-1 (Version None)
Quarter: 2009Q2

REPORT INFORMATION
  Report Type: 
  Country: None (occurrence: None)
  Receive Date: 20090603
  Receipt Date: 20090528
  Transmission Date: 20091009
  Serious: Yes (Other)
  Sender: FDA-Public Use
  Company Number: AT-ABBOTT-09P-009-0575985-00

PATIENT
  Age: 50 Year
  Sex: Female

DRUGS (3)
  1. KLACID [Suspect]
     Indication: HELICOBACTER INFECTION
  2. AUGMENTIN [Concomitant]
     Indication: HELICOBACTER INFECTION
  3. PROTON PUMP INHIBITORS [Concomitant]
     Indication: HELICOBACTER INFECTION

REACTIONS (1)
  - RENAL PAIN [None]
